FAERS Safety Report 25938032 (Version 2)
Quarter: 2025Q4

REPORT INFORMATION
  Report Type: Report from Study
  Country: EU (occurrence: EU)
  Receive Date: 20251018
  Receipt Date: 20251023
  Transmission Date: 20260118
  Serious: Yes (Other)
  Sender: ABBVIE
  Company Number: EU-JNJFOC-20251013801

PATIENT

DRUGS (3)
  1. IMBRUVICA [Suspect]
     Active Substance: IBRUTINIB
     Indication: Waldenstrom^s macroglobulinaemia
     Route: 048
  2. IMBRUVICA [Suspect]
     Active Substance: IBRUTINIB
     Indication: Waldenstrom^s macroglobulinaemia
     Route: 048
  3. RITUXIMAB [Suspect]
     Active Substance: RITUXIMAB
     Indication: Waldenstrom^s macroglobulinaemia
     Route: 065

REACTIONS (10)
  - Haematotoxicity [Unknown]
  - Abdominal discomfort [Unknown]
  - Infection [Unknown]
  - Thrombocytopenia [Unknown]
  - Toxicity to various agents [Unknown]
  - Neutropenia [Unknown]
  - Diarrhoea [Unknown]
  - Atrial fibrillation [Unknown]
  - Haemorrhage [Unknown]
  - Hypertension [Unknown]
